FAERS Safety Report 7335521-5 (Version None)
Quarter: 2011Q1

REPORT INFORMATION
  Report Type: 
  Country: None (occurrence: None)
  Receive Date: 20110301
  Receipt Date: 20110301
  Transmission Date: 20110831
  Serious: Yes (Hospitalization)
  Sender: FDA-Public Use
  Company Number: None

PATIENT
  Sex: Female
  Weight: 198.2 kg

DRUGS (18)
  1. VITAMIN TAB [Concomitant]
  2. PEPCID AC [Concomitant]
  3. PERIO MED RINSE [Concomitant]
  4. CENTRUM SILVER [Concomitant]
  5. DEXTAMETHASONE [Concomitant]
  6. OXCODONE [Concomitant]
  7. PEMETREXED [Concomitant]
  8. ONGLYZA [Concomitant]
  9. BYSTOLIC [Concomitant]
  10. CRESTOR [Concomitant]
  11. VITAMIN B-12 [Concomitant]
  12. TOBRAMYCIN [Concomitant]
  13. CISPLATIN [Suspect]
     Indication: LUNG ADENOCARCINOMA
     Dosage: 75 MG/M^2 EVERY 21 DAYS X4 IV DRIP
     Route: 041
     Dates: start: 20110110, end: 20110221
  14. FOLIC ACID [Concomitant]
  15. COMPAZINE [Concomitant]
  16. EMEND [Concomitant]
  17. VORINOSTAT 100 MG [Suspect]
     Indication: LUNG ADENOCARCINOMA
     Dosage: 100 MG ONCE DAILY MONDAY- WED-FRIDAY PO
     Route: 048
     Dates: start: 20110107, end: 20110225
  18. BENICAR [Concomitant]

REACTIONS (5)
  - DEHYDRATION [None]
  - HYPOKALAEMIA [None]
  - VOMITING [None]
  - URINARY TRACT INFECTION [None]
  - NAUSEA [None]
